FAERS Safety Report 11628487 (Version 1)
Quarter: 2015Q4

REPORT INFORMATION
  Report Type: Spontaneous
  Country: US (occurrence: US)
  Receive Date: 20151014
  Receipt Date: 20151014
  Transmission Date: 20160304
  Serious: Yes (Other)
  Sender: FDA-Public Use
  Company Number: US-GLAXOSMITHKLINE-US2015GSK132938

PATIENT
  Sex: Female

DRUGS (1)
  1. VENTOLIN HFA [Suspect]
     Active Substance: ALBUTEROL SULFATE
     Indication: PRODUCT USED FOR UNKNOWN INDICATION
     Dosage: 90 ?G, UNK
     Dates: start: 20110627

REACTIONS (9)
  - Arthritis [Unknown]
  - Emotional disorder [Unknown]
  - Chronic obstructive pulmonary disease [Unknown]
  - Traumatic lung injury [Unknown]
  - Scoliosis [Unknown]
  - Dyspnoea [Unknown]
  - Chemical injury [Unknown]
  - Anxiety [Unknown]
  - Cough [Unknown]
